FAERS Safety Report 8024810-7 (Version None)
Quarter: 2012Q1

REPORT INFORMATION
  Report Type: 
  Country: None (occurrence: None)
  Receive Date: 20120105
  Receipt Date: 20111229
  Transmission Date: 20120608
  Serious: Yes (Other)
  Sender: FDA-Public Use
  Company Number: US-JNJFOC-20120100256

PATIENT
  Age: 36 Year
  Sex: Female
  Weight: 90.72 kg

DRUGS (4)
  1. ZYRTEC [Suspect]
     Route: 048
  2. ZYRTEC [Suspect]
     Indication: MULTIPLE ALLERGIES
     Route: 048
     Dates: start: 20111229, end: 20111229
  3. DOXYCYCLINE [Concomitant]
     Indication: STAPHYLOCOCCAL INFECTION
     Dosage: WEEK
     Route: 065
  4. ANTIBIOTICS UNSPECIFIED [Concomitant]
     Indication: STAPHYLOCOCCAL INFECTION
     Route: 065

REACTIONS (4)
  - MIGRAINE [None]
  - DIZZINESS [None]
  - LACRIMATION INCREASED [None]
  - VISION BLURRED [None]
